FAERS Safety Report 7098077-0 (Version None)
Quarter: 2010Q4

REPORT INFORMATION
  Report Type: 
  Country: None (occurrence: None)
  Receive Date: 20101103
  Receipt Date: 20101021
  Transmission Date: 20110411
  Serious: Yes (Hospitalization, Other)
  Sender: FDA-Public Use
  Company Number: 2010AP002245

PATIENT
  Age: 85 Year
  Sex: Female

DRUGS (5)
  1. HYDROCHLOROTHIAZIDE [Suspect]
     Indication: PRODUCT USED FOR UNKNOWN INDICATION
  2. TAMOXIFEN CITRATE [Concomitant]
  3. DIGOXIN [Concomitant]
  4. INSULIN (INSULIN) [Concomitant]
  5. AMILORIDE (AMILORIDE) [Concomitant]

REACTIONS (2)
  - DELIRIUM [None]
  - HYPERCALCAEMIA [None]
